FAERS Safety Report 18841688 (Version 2)
Quarter: 2021Q1

REPORT INFORMATION
  Report Type: Report from Study
  Country: CA (occurrence: CA)
  Receive Date: 20210204
  Receipt Date: 20210226
  Transmission Date: 20210419
  Serious: Yes (Hospitalization, Other)
  Sender: FDA-Public Use
  Company Number: CA-JNJFOC-20210147943

PATIENT
  Age: 82 Year
  Sex: Female
  Weight: 44 kg

DRUGS (1)
  1. REMICADE [Suspect]
     Active Substance: INFLIXIMAB
     Indication: COLITIS ULCERATIVE
     Route: 042
     Dates: start: 20200522

REACTIONS (6)
  - Immunosuppression [Unknown]
  - COVID-19 [Not Recovered/Not Resolved]
  - Fatigue [Unknown]
  - Weight decreased [Not Recovered/Not Resolved]
  - Diarrhoea [Unknown]
  - Somnolence [Unknown]

NARRATIVE: CASE EVENT DATE: 202101
